FAERS Safety Report 25304002 (Version 1)
Quarter: 2025Q2

REPORT INFORMATION
  Report Type: Spontaneous
  Country: FR (occurrence: FR)
  Receive Date: 20250513
  Receipt Date: 20250513
  Transmission Date: 20250717
  Serious: Yes (Life-Threatening, Hospitalization, Other)
  Sender: RANBAXY
  Company Number: FR-AFSSAPS-CF2025000088

PATIENT
  Age: 40 Year
  Sex: Male

DRUGS (2)
  1. PREGABALIN [Suspect]
     Active Substance: PREGABALIN
     Indication: Epilepsy
     Dosage: 150 MG IN THE MORNING
     Route: 065
     Dates: start: 20250130, end: 20250130
  2. TEGRETOL [Suspect]
     Active Substance: CARBAMAZEPINE
     Indication: Epilepsy
     Dosage: 2 TABLETS OF 200 MG, MORNING AND EVENING
     Route: 065
     Dates: start: 20250130, end: 20250130

REACTIONS (2)
  - Toxicity to various agents [Recovered/Resolved]
  - Coma [Recovered/Resolved]

NARRATIVE: CASE EVENT DATE: 20250130
